FAERS Safety Report 5340454-X (Version None)
Quarter: 2007Q2

REPORT INFORMATION
  Report Type: 
  Country: None (occurrence: None)
  Receive Date: 20070405
  Receipt Date: 20061120
  Transmission Date: 20071010
  Serious: Yes (Other)
  Sender: FDA-Public Use
  Company Number: US200611004198

PATIENT
  Age: 61 Year
  Sex: Female

DRUGS (4)
  1. CYMBALTA [Suspect]
     Dosage: SEE IMAGE
     Dates: start: 20050101, end: 20051201
  2. CYMBALTA [Suspect]
     Dosage: SEE IMAGE
     Dates: start: 20051201, end: 20060901
  3. CYMBALTA [Suspect]
     Dosage: SEE IMAGE
     Dates: start: 20060901, end: 20061101
  4. CYMBALTA [Suspect]
     Dosage: SEE IMAGE
     Dates: start: 20050701

REACTIONS (1)
  - SEROTONIN SYNDROME [None]
